FAERS Safety Report 10260479 (Version 1)
Quarter: 2014Q2

REPORT INFORMATION
  Report Type: Spontaneous
  Country: US (occurrence: US)
  Receive Date: 20140626
  Receipt Date: 20140626
  Transmission Date: 20141212
  Serious: Yes (Other)
  Sender: FDA-Public Use
  Company Number: US-AMGEN INC.-USASP2014046889

PATIENT
  Age: 50 Year
  Sex: Male
  Weight: 81 kg

DRUGS (1)
  1. EPOGEN [Suspect]
     Indication: RENAL FAILURE CHRONIC
     Dosage: 40000 UNIT, Q2WK
     Route: 065

REACTIONS (2)
  - Haemoglobin abnormal [Not Recovered/Not Resolved]
  - Blood erythropoietin abnormal [Not Recovered/Not Resolved]
